FAERS Safety Report 11666435 (Version 3)
Quarter: 2015Q4

REPORT INFORMATION
  Report Type: Spontaneous
  Country: JP (occurrence: JP)
  Receive Date: 20151027
  Receipt Date: 20151109
  Transmission Date: 20160304
  Serious: Yes (Hospitalization, Other)
  Sender: FDA-Public Use
  Company Number: PHJP1996JP001466

PATIENT
  Age: 78 Year
  Sex: Male

DRUGS (6)
  1. NOVAROK [Concomitant]
     Indication: PRODUCT USED FOR UNKNOWN INDICATION
     Dosage: 1 DF,
     Route: 048
     Dates: start: 19960520, end: 19960607
  2. VENCOLL [Concomitant]
     Indication: PRODUCT USED FOR UNKNOWN INDICATION
     Dosage: 3 DF,
     Route: 048
     Dates: start: 19960520, end: 19960607
  3. VOLTAREN [Suspect]
     Active Substance: DICLOFENAC SODIUM
     Indication: OSTEOARTHRITIS
  4. YOUBIQUINON [Concomitant]
     Indication: CARDIAC FAILURE
     Dosage: 3 DF,
     Route: 048
     Dates: start: 19960520, end: 19960607
  5. VOLTAREN [Suspect]
     Active Substance: DICLOFENAC SODIUM
     Indication: ANTIINFLAMMATORY THERAPY
     Dosage: 75 MG,
     Route: 048
     Dates: start: 19960520, end: 19960607
  6. ESBERIVEN                          /06844701/ [Concomitant]
     Indication: HAEMORRHOIDS
     Dosage: 3 DF,
     Route: 048
     Dates: start: 19960520, end: 19960607

REACTIONS (4)
  - Abdominal pain [Recovered/Resolved]
  - Malaise [Recovering/Resolving]
  - Anaemia [Recovering/Resolving]
  - Melaena [Recovered/Resolved]

NARRATIVE: CASE EVENT DATE: 19960610
